FAERS Safety Report 14368372 (Version 2)
Quarter: 2018Q1

REPORT INFORMATION
  Report Type: Report from Study
  Country: BR (occurrence: BR)
  Receive Date: 20180109
  Receipt Date: 20180115
  Transmission Date: 20180509
  Serious: Yes (Hospitalization, Other)
  Sender: FDA-Public Use
  Company Number: PHHY2018BR001403

PATIENT
  Age: 19 Year
  Sex: Male
  Weight: 57 kg

DRUGS (3)
  1. EXJADE [Suspect]
     Active Substance: DEFERASIROX
     Dosage: 1 DF, QD
     Route: 048
     Dates: start: 2010
  2. CARBAMAZEPIN [Concomitant]
     Active Substance: CARBAMAZEPINE
     Indication: PRODUCT USED FOR UNKNOWN INDICATION
     Dosage: 2 DF, QD
     Route: 065
  3. EXJADE [Suspect]
     Active Substance: DEFERASIROX
     Indication: SICKLE CELL ANAEMIA
     Dosage: 2 DF, QD
     Route: 048
     Dates: start: 2010

REACTIONS (12)
  - Anaemia [Unknown]
  - Coma [Recovered/Resolved]
  - Cardiac arrest [Unknown]
  - Lung infection [Unknown]
  - Depression [Unknown]
  - Cardiac infection [Unknown]
  - Hepatic infection [Unknown]
  - Seizure [Unknown]
  - Pain [Unknown]
  - Malaise [Unknown]
  - Dysphonia [Unknown]
  - Weight decreased [Unknown]

NARRATIVE: CASE EVENT DATE: 20180104
